FAERS Safety Report 6647548-7 (Version None)
Quarter: 2010Q1

REPORT INFORMATION
  Report Type: 
  Country: None (occurrence: None)
  Receive Date: 20100323
  Receipt Date: 20100315
  Transmission Date: 20100710
  Serious: Yes (Hospitalization, Other)
  Sender: FDA-Public Use
  Company Number: US-AMGEN-QUU399900

PATIENT
  Sex: Male

DRUGS (3)
  1. ENBREL [Suspect]
     Indication: RHEUMATOID ARTHRITIS
     Route: 058
     Dates: start: 19960315
  2. PLAQUENIL [Concomitant]
  3. METHOTREXATE [Concomitant]
     Route: 058

REACTIONS (18)
  - ARTHRALGIA [None]
  - BLOOD TESTOSTERONE DECREASED [None]
  - CHRONIC OBSTRUCTIVE PULMONARY DISEASE [None]
  - DIABETES MELLITUS [None]
  - ELECTROCARDIOGRAM CHANGE [None]
  - ELECTROCARDIOGRAM QT PROLONGED [None]
  - HYPOAESTHESIA [None]
  - JOINT SWELLING [None]
  - LUNG DISORDER [None]
  - MOBILITY DECREASED [None]
  - PARAESTHESIA [None]
  - PULMONARY FIBROSIS [None]
  - RECTAL HAEMORRHAGE [None]
  - RENAL DISORDER [None]
  - SJOGREN'S SYNDROME [None]
  - SYNCOPE [None]
  - TEETH BRITTLE [None]
  - THYROID DISORDER [None]
